FAERS Safety Report 4775509-1 (Version None)
Quarter: 2005Q3

REPORT INFORMATION
  Report Type: 
  Country: None (occurrence: None)
  Receive Date: 20050922
  Receipt Date: 20050912
  Transmission Date: 20060218
  Serious: Yes (Death)
  Sender: FDA-Public Use
  Company Number: US-JNJFOC-20050902851

PATIENT
  Sex: Female

DRUGS (1)
  1. REMICADE [Suspect]
     Indication: SARCOIDOSIS
     Route: 042

REACTIONS (1)
  - ASPERGILLOSIS [None]
